FAERS Safety Report 8930094 (Version 2)
Quarter: 2012Q4

REPORT INFORMATION
  Report Type: 
  Country: US (occurrence: US)
  Receive Date: 20121121
  Receipt Date: 20121212
  Transmission Date: 20130627
  Serious: Yes (Death, Hospitalization, Other)
  Sender: FDA-Public Use
  Company Number: US-ASTELLAS-1105467

PATIENT
  Sex: Male

DRUGS (3)
  1. TARCEVA [Suspect]
     Indication: MALIGNANT RESPIRATORY TRACT NEOPLASM
     Route: 065
     Dates: start: 20090309
  2. CARBOPLATIN [Concomitant]
  3. TAXOL [Concomitant]

REACTIONS (5)
  - Death [Fatal]
  - Metastases to central nervous system [Unknown]
  - Hypoxia [Unknown]
  - Dyspnoea [Unknown]
  - Oedema [Unknown]
